FAERS Safety Report 24848443 (Version 1)
Quarter: 2025Q1

REPORT INFORMATION
  Report Type: Spontaneous
  Country: US (occurrence: US)
  Receive Date: 20250116
  Receipt Date: 20250116
  Transmission Date: 20250409
  Serious: No
  Sender: RICONPHARMA LLC
  Company Number: US-RICONPHARMA, LLC-2023RIC000049

PATIENT

DRUGS (3)
  1. SCOPOLAMINE [Suspect]
     Active Substance: SCOPOLAMINE
     Indication: Cyclic vomiting syndrome
     Route: 062
  2. LOSARTAN [Concomitant]
     Active Substance: LOSARTAN
     Indication: Hypertension
     Route: 065
  3. PRAVASTATIN [Concomitant]
     Active Substance: PRAVASTATIN
     Indication: Blood cholesterol increased
     Route: 065

REACTIONS (6)
  - Hypersensitivity [Recovering/Resolving]
  - Dry skin [Not Recovered/Not Resolved]
  - Application site erythema [Recovering/Resolving]
  - Rash [Recovering/Resolving]
  - Product quality issue [Unknown]
  - Product use in unapproved indication [Unknown]
